FAERS Safety Report 8113304-6 (Version None)
Quarter: 2012Q1

REPORT INFORMATION
  Report Type: 
  Country: None (occurrence: None)
  Receive Date: 20120203
  Receipt Date: 20120126
  Transmission Date: 20120608
  Serious: Yes (Other)
  Sender: FDA-Public Use
  Company Number: PHHY2012JP002706

PATIENT
  Age: 85 Year
  Sex: Male

DRUGS (2)
  1. ZOMETA [Suspect]
     Indication: METASTASES TO BONE
     Dosage: 4 MG, PER ADMINISTRATION
     Route: 041
  2. CASODEX [Concomitant]
     Indication: PROSTATE CANCER
     Dosage: UNK UKN, UNK

REACTIONS (2)
  - FREE PROSTATE-SPECIFIC ANTIGEN DECREASED [None]
  - BLOOD ALKALINE PHOSPHATASE INCREASED [None]
